FAERS Safety Report 6195366-9 (Version None)
Quarter: 2009Q2

REPORT INFORMATION
  Report Type: 
  Country: None (occurrence: None)
  Receive Date: 20090515
  Receipt Date: 20090430
  Transmission Date: 20091009
  Serious: Yes (Other)
  Sender: FDA-Public Use
  Company Number: 2009001304

PATIENT

DRUGS (1)
  1. ERLOTINIB                (TABLET) (ERLOTINIB) [Suspect]
     Indication: GLIOMA
     Dosage: MG/M2, ORAL
     Route: 048

REACTIONS (1)
  - RHABDOMYOSARCOMA [None]
